FAERS Safety Report 17013777 (Version 1)
Quarter: 2019Q4

REPORT INFORMATION
  Report Type: Spontaneous
  Country: US (occurrence: US)
  Receive Date: 20191110
  Receipt Date: 20191110
  Transmission Date: 20200122
  Serious: Yes (Other)
  Sender: FDA-Public Use
  Company Number: US-ELI_LILLY_AND_COMPANY-US201911001209

PATIENT
  Age: 52 Year
  Sex: Female

DRUGS (2)
  1. HUMULIN N [Suspect]
     Active Substance: INSULIN HUMAN
     Indication: TYPE 1 DIABETES MELLITUS
     Dosage: UNK UNK, PRN
     Route: 058
  2. HUMULIN R [Suspect]
     Active Substance: INSULIN HUMAN
     Indication: TYPE 1 DIABETES MELLITUS
     Dosage: UNK UNK, PRN
     Route: 058

REACTIONS (9)
  - Blood glucose increased [Unknown]
  - Vomiting [Unknown]
  - Seizure [Unknown]
  - Road traffic accident [Unknown]
  - Blood glucose decreased [Unknown]
  - Lower limb fracture [Unknown]
  - Brain injury [Unknown]
  - Lower limb fracture [Unknown]
  - Blood glucose decreased [Recovering/Resolving]

NARRATIVE: CASE EVENT DATE: 1979
